FAERS Safety Report 5892777-3 (Version None)
Quarter: 2008Q3

REPORT INFORMATION
  Report Type: 
  Country: None (occurrence: None)
  Receive Date: 20080922
  Receipt Date: 20080922
  Transmission Date: 20090109
  Serious: Yes (Other)
  Sender: FDA-Public Use
  Company Number: None

PATIENT
  Age: 70 Year
  Sex: Male
  Weight: 76.2043 kg

DRUGS (4)
  1. SIMVASTATIN [Suspect]
     Indication: CORONARY ARTERY DISEASE
     Dosage: 1 TABLET QD PO
     Route: 048
     Dates: start: 20000201, end: 20080818
  2. TOPROL-XL [Concomitant]
  3. SYNTHROID [Concomitant]
  4. NEXIUM [Concomitant]

REACTIONS (2)
  - RASH [None]
  - TYPE 2 DIABETES MELLITUS [None]
